FAERS Safety Report 7676566-5 (Version None)
Quarter: 2011Q3

REPORT INFORMATION
  Report Type: 
  Country: None (occurrence: None)
  Receive Date: 20110811
  Receipt Date: 20110804
  Transmission Date: 20111222
  Serious: Yes (Other)
  Sender: FDA-Public Use
  Company Number: JP-PFIZER INC-2011179800

PATIENT

DRUGS (2)
  1. PREDNISOLONE [Interacting]
  2. RIFAMPICIN [Suspect]

REACTIONS (2)
  - POLYMYOSITIS [None]
  - DRUG INTERACTION [None]
